FAERS Safety Report 10482668 (Version 1)
Quarter: 2014Q3

REPORT INFORMATION
  Report Type: Report from Study
  Country: BR (occurrence: BR)
  Receive Date: 20140929
  Receipt Date: 20140929
  Transmission Date: 20150326
  Serious: Yes (Other)
  Sender: FDA-Public Use
  Company Number: PHHY2014BR127099

PATIENT
  Age: 70 Year
  Sex: Female

DRUGS (2)
  1. EXELON PATCH [Suspect]
     Active Substance: RIVASTIGMINE
     Dosage: 4.6 MG, UNK (5CM2)
     Route: 062
  2. EXELON [Suspect]
     Active Substance: RIVASTIGMINE TARTRATE
     Dosage: UNK UKN, UNK

REACTIONS (8)
  - Nausea [Unknown]
  - Decreased appetite [Unknown]
  - Dementia Alzheimer^s type [Unknown]
  - Disorientation [Unknown]
  - Weight decreased [Unknown]
  - Headache [Unknown]
  - Memory impairment [Unknown]
  - Confusional state [Unknown]
